FAERS Safety Report 7791631-X (Version None)
Quarter: 2011Q3

REPORT INFORMATION
  Report Type: 
  Country: None (occurrence: None)
  Receive Date: 20110930
  Receipt Date: 20110930
  Transmission Date: 20111222
  Serious: Yes (Other)
  Sender: FDA-Public Use
  Company Number: None

PATIENT
  Sex: Female
  Weight: 75 kg

DRUGS (1)
  1. BONIVA [Suspect]
     Indication: OSTEOPOROSIS
     Dosage: 1 BONIVA MONTHLY
     Dates: start: 20110401, end: 20110901

REACTIONS (12)
  - ARTHRALGIA [None]
  - GINGIVAL PAIN [None]
  - GASTROINTESTINAL DISORDER [None]
  - INFLUENZA [None]
  - DYSGEUSIA [None]
  - HEADACHE [None]
  - CONSTIPATION [None]
  - GINGIVITIS [None]
  - BURNING SENSATION [None]
  - NAUSEA [None]
  - ABDOMINAL PAIN UPPER [None]
  - MYALGIA [None]
